FAERS Safety Report 16834631 (Version 1)
Quarter: 2019Q3

REPORT INFORMATION
  Report Type: Spontaneous
  Country: US (occurrence: US)
  Receive Date: 20190920
  Receipt Date: 20190920
  Transmission Date: 20191005
  Serious: No
  Sender: FDA-Public Use
  Company Number: US-TEVA-2019-US-1111368

PATIENT
  Sex: Female

DRUGS (18)
  1. ATORVASTATIN [Concomitant]
     Active Substance: ATORVASTATIN
  2. HORIZANT [Concomitant]
     Active Substance: GABAPENTIN ENACARBIL
  3. MIRAPEX [Concomitant]
     Active Substance: PRAMIPEXOLE DIHYDROCHLORIDE
  4. BENAZOPRIL [Concomitant]
  5. VIT D [Concomitant]
     Active Substance: VITAMIN D NOS
  6. COPAXONE [Suspect]
     Active Substance: GLATIRAMER ACETATE
     Indication: MULTIPLE SCLEROSIS
     Route: 058
     Dates: start: 20170727
  7. CENTANY OIN [Concomitant]
  8. METOPROL SUC [Concomitant]
  9. NUEDEXTA [Concomitant]
     Active Substance: DEXTROMETHORPHAN HYDROBROMIDE\QUINIDINE SULFATE
  10. AMLODIPINE [Concomitant]
     Active Substance: AMLODIPINE BESYLATE
  11. BENAZEP [Concomitant]
  12. CYMBALTA [Concomitant]
     Active Substance: DULOXETINE HYDROCHLORIDE
  13. DULOXETINE. [Concomitant]
     Active Substance: DULOXETINE
  14. LEVOTHYROXIN [Concomitant]
     Active Substance: LEVOTHYROXINE
  15. ULTRAM ER [Concomitant]
     Active Substance: TRAMADOL HYDROCHLORIDE
  16. CYANOCABALAM INJ [Concomitant]
  17. OXYBUTYNIN. [Concomitant]
     Active Substance: OXYBUTYNIN CHLORIDE
  18. PRAMIPEXOLE. [Concomitant]
     Active Substance: PRAMIPEXOLE

REACTIONS (2)
  - Memory impairment [Not Recovered/Not Resolved]
  - Bladder disorder [Not Recovered/Not Resolved]
